FAERS Safety Report 16026815 (Version 2)
Quarter: 2022Q3

REPORT INFORMATION
  Report Type: Spontaneous
  Country: FR (occurrence: FR)
  Receive Date: 20190303
  Receipt Date: 20220831
  Transmission Date: 20221027
  Serious: Yes (Death)
  Sender: FDA-Public Use
  Company Number: None

PATIENT
  Age: 52 Year
  Sex: Male
  Weight: 96 kg

DRUGS (13)
  1. CYCLOSPORINE [Suspect]
     Active Substance: CYCLOSPORINE
     Indication: Bone marrow transplant
     Dosage: PASS
     Route: 065
     Dates: start: 20180811
  2. EMEND [Suspect]
     Active Substance: APREPITANT
     Indication: Nausea
     Dosage: UNK
     Route: 048
     Dates: start: 20180806, end: 20180816
  3. IMIPENEM [Suspect]
     Active Substance: IMIPENEM
     Indication: Infection
     Dosage: UNK
     Route: 042
     Dates: start: 20180820
  4. PANTOPRAZOLE SODIUM [Suspect]
     Active Substance: PANTOPRAZOLE SODIUM
     Indication: Nausea
     Dosage: UNK
     Route: 048
     Dates: start: 20180806, end: 20180816
  5. CYCLOPHOSPHAMIDE [Suspect]
     Active Substance: CYCLOPHOSPHAMIDE
     Indication: Bone marrow transplant
     Dosage: UNK
     Route: 042
     Dates: start: 20180810, end: 20180811
  6. METRONIDAZOLE [Suspect]
     Active Substance: METRONIDAZOLE
     Indication: Infection
     Dosage: UNK
     Route: 042
     Dates: start: 20180816, end: 20180823
  7. PIPERACILLIN AND TAZOBACTAM [Suspect]
     Active Substance: PIPERACILLIN SODIUM\TAZOBACTAM SODIUM
     Indication: Infection
     Dosage: UNK
     Route: 042
     Dates: start: 20180815, end: 20180820
  8. ONDANSETRON [Suspect]
     Active Substance: ONDANSETRON
     Indication: Nausea
     Dosage: UNK
     Route: 042
     Dates: start: 20180807, end: 20180816
  9. ACYCLOVIR [Suspect]
     Active Substance: ACYCLOVIR
     Indication: Infection
     Dosage: UNK
     Route: 042
     Dates: start: 20180818
  10. CORDARONE [Suspect]
     Active Substance: AMIODARONE HYDROCHLORIDE
     Indication: Atrial fibrillation
     Dosage: UNK
     Route: 042
     Dates: start: 20180816, end: 20180822
  11. LINEZOLID [Suspect]
     Active Substance: LINEZOLID
     Indication: Infection
     Dosage: UNK
     Route: 042
     Dates: start: 20180816, end: 20180823
  12. IOBITRIDOL [Suspect]
     Active Substance: IOBITRIDOL
     Indication: Computerised tomogram
     Dosage: UNK
     Route: 042
     Dates: start: 20180816, end: 20180816
  13. MYCAMINE [Suspect]
     Active Substance: MICAFUNGIN SODIUM
     Indication: Infection
     Dosage: UNK
     Route: 042
     Dates: start: 20180817, end: 20180823

REACTIONS (1)
  - Toxic epidermal necrolysis [Fatal]

NARRATIVE: CASE EVENT DATE: 20180821
